FAERS Safety Report 9969783 (Version 1)
Quarter: 2014Q1

REPORT INFORMATION
  Report Type: Spontaneous
  Country: US (occurrence: None)
  Receive Date: 20140131
  Receipt Date: 20140131
  Transmission Date: 20141002
  Serious: Yes (Hospitalization, Other)
  Sender: FDA-Public Use
  Company Number: 084993

PATIENT
  Sex: Male
  Weight: 157.4 kg

DRUGS (3)
  1. KEPPRA [Suspect]
     Indication: CONVULSION
     Dates: start: 201211, end: 201211
  2. LEVETIRACETAM [Suspect]
     Indication: EPILEPSY
     Dates: start: 201301, end: 20130207
  3. DILANTIN /00017401/ [Concomitant]

REACTIONS (2)
  - Convulsion [None]
  - Drug ineffective [None]
